FAERS Safety Report 6149267-2 (Version None)
Quarter: 2009Q2

REPORT INFORMATION
  Report Type: 
  Country: None (occurrence: None)
  Receive Date: 20090406
  Receipt Date: 20090406
  Transmission Date: 20091009
  Serious: Yes (Death)
  Sender: FDA-Public Use
  Company Number: None

PATIENT
  Sex: Male

DRUGS (2)
  1. METHADONE HCL [Suspect]
     Indication: BACK PAIN
     Dosage: 4-10MG DOSES 4X A DAY PO
     Route: 048
     Dates: start: 20090326, end: 20090328
  2. OXYCODONE HCL [Suspect]
     Indication: BACK PAIN
     Dosage: 3-10MG DOSES 4X A DAY PO
     Route: 048
     Dates: start: 20090326, end: 20090328

REACTIONS (1)
  - DEATH [None]
